FAERS Safety Report 7296271-7 (Version None)
Quarter: 2011Q1

REPORT INFORMATION
  Report Type: 
  Country: None (occurrence: None)
  Receive Date: 20110204
  Receipt Date: 20110105
  Transmission Date: 20110831
  Serious: Yes (Hospitalization)
  Sender: FDA-Public Use
  Company Number: 1000018623

PATIENT
  Age: 39 Year
  Sex: Female

DRUGS (6)
  1. ALPRAZOLAM [Suspect]
  2. CITALOPRAM HYDROBROMIDE [Suspect]
  3. ALCOHOL (ETHANOL) [Suspect]
  4. CAFFEINE (CAFFEINE) [Suspect]
  5. ACETAMINOPHEN [Suspect]
  6. BENZODIAZEPINE (BENZODIAZEPINE) [Suspect]

REACTIONS (5)
  - LIVER INJURY [None]
  - UNRESPONSIVE TO STIMULI [None]
  - ACIDOSIS [None]
  - COMA [None]
  - MULTIPLE DRUG OVERDOSE [None]
